FAERS Safety Report 5458633-X (Version None)
Quarter: 2007Q3

REPORT INFORMATION
  Report Type: 
  Country: None (occurrence: None)
  Receive Date: 20070919
  Receipt Date: 20070405
  Transmission Date: 20080115
  Serious: No
  Sender: FDA-Public Use
  Company Number: US-ASTRAZENECA-2007UW06770

PATIENT
  Age: 43 Year
  Sex: Female
  Weight: 51.3 kg

DRUGS (1)
  1. SEROQUEL [Suspect]
     Indication: ANXIETY
     Route: 048
     Dates: start: 20070404

REACTIONS (6)
  - AGITATION [None]
  - ANGER [None]
  - CRYING [None]
  - DEPRESSION [None]
  - DYSPNOEA [None]
  - FEELING JITTERY [None]
